FAERS Safety Report 6706731-2 (Version None)
Quarter: 2010Q2

REPORT INFORMATION
  Report Type: 
  Country: None (occurrence: None)
  Receive Date: 20100430
  Receipt Date: 20100430
  Transmission Date: 20101027
  Serious: Yes (Hospitalization)
  Sender: FDA-Public Use
  Company Number: None

PATIENT
  Sex: Female
  Weight: 55.36 kg

DRUGS (2)
  1. TAXOL [Suspect]
     Dosage: 271 MG
     Dates: end: 20100113
  2. TOPOTECAN [Suspect]
     Dosage: 3.48 MG
     Dates: end: 20100115

REACTIONS (15)
  - ABDOMINAL PAIN [None]
  - ANXIETY [None]
  - ASTHENIA [None]
  - ATRIAL FLUTTER [None]
  - BACTERIAL INFECTION [None]
  - BACTERIAL TEST POSITIVE [None]
  - CACHEXIA [None]
  - DEHYDRATION [None]
  - ENTEROCOCCAL INFECTION [None]
  - ESCHERICHIA INFECTION [None]
  - HEART RATE INCREASED [None]
  - KLEBSIELLA INFECTION [None]
  - PROTEUS INFECTION [None]
  - VOMITING [None]
  - WEIGHT DECREASED [None]
